FAERS Safety Report 6519293-X (Version None)
Quarter: 2009Q4

REPORT INFORMATION
  Report Type: 
  Country: None (occurrence: None)
  Receive Date: 20091228
  Receipt Date: 20091217
  Transmission Date: 20100525
  Serious: Yes (Other)
  Sender: FDA-Public Use
  Company Number: GB-JNJFOC-20091103643

PATIENT
  Sex: Female
  Weight: 67 kg

DRUGS (10)
  1. REMICADE [Suspect]
     Route: 042
  2. REMICADE [Suspect]
     Indication: RHEUMATOID ARTHRITIS
     Route: 042
  3. METHOTREXATE [Concomitant]
  4. PREDNISOLONE [Concomitant]
  5. ALENDRONATE SODIUM [Concomitant]
  6. CALCICHEW [Concomitant]
  7. CELECOXIB [Concomitant]
  8. FOLIC ACID [Concomitant]
  9. MS CONTIN [Concomitant]
  10. PARACETAMOL [Concomitant]

REACTIONS (2)
  - PRECANCEROUS SKIN LESION [None]
  - SQUAMOUS CELL CARCINOMA OF SKIN [None]
